FAERS Safety Report 14666858 (Version 1)
Quarter: 2018Q1

REPORT INFORMATION
  Report Type: Spontaneous
  Country: CA (occurrence: CA)
  Receive Date: 20180322
  Receipt Date: 20180322
  Transmission Date: 20180509
  Serious: Yes (Other)
  Sender: FDA-Public Use
  Company Number: CA-ASTRAZENECA-2018SE33732

PATIENT
  Sex: Female

DRUGS (1)
  1. ARIMIDEX [Suspect]
     Active Substance: ANASTROZOLE
     Route: 048

REACTIONS (4)
  - Concussion [Unknown]
  - Malaise [Unknown]
  - Head injury [Unknown]
  - Drug dose omission [Unknown]

NARRATIVE: CASE EVENT DATE: 20180306
